FAERS Safety Report 20140184 (Version 1)
Quarter: 2021Q4

REPORT INFORMATION
  Report Type: Spontaneous
  Country: HR (occurrence: HR)
  Receive Date: 20211202
  Receipt Date: 20211202
  Transmission Date: 20220304
  Serious: Yes (Other)
  Sender: FDA-Public Use
  Company Number: None

PATIENT
  Age: 70 Year
  Sex: Male
  Weight: 78 kg

DRUGS (9)
  1. ATORVASTATIN [Suspect]
     Active Substance: ATORVASTATIN
     Indication: Acute myocardial infarction
     Route: 048
     Dates: start: 20200928, end: 20210128
  2. RAMIPRIL [Concomitant]
     Active Substance: RAMIPRIL
     Indication: Essential hypertension
     Dosage: 2.5 MILLIGRAM DAILY;
     Route: 048
     Dates: start: 20200928
  3. NORMABEL [Concomitant]
     Active Substance: DIAZEPAM
     Dosage: 5 MG 1-2 /DAY
     Route: 048
  4. ACETAMINOPHEN\TRAMADOL HYDROCHLORIDE [Concomitant]
     Active Substance: ACETAMINOPHEN\TRAMADOL HYDROCHLORIDE
     Dosage: 1 DF = 75 MG TRAMADOL HYDROCHLORIDE + 650 MG PARACETAMOL , UNIT DOSE : 1 DF
     Route: 048
  5. CONTROLOC [Concomitant]
     Active Substance: PANTOPRAZOLE SODIUM
     Dosage: 40 MG
     Route: 048
  6. ESCITALOPRAM OXALATE [Concomitant]
     Active Substance: ESCITALOPRAM OXALATE
     Indication: Post-traumatic stress disorder
     Dosage: 10 MILLIGRAM DAILY;
     Route: 048
     Dates: start: 20191030
  7. TICAGRELOR [Concomitant]
     Active Substance: TICAGRELOR
     Indication: Acute myocardial infarction
     Dosage: 80 MILLIGRAM DAILY;
     Route: 048
     Dates: start: 20200928
  8. TAMSULOSIN [Concomitant]
     Active Substance: TAMSULOSIN
     Dosage: 0.4 MG
     Route: 048
  9. IBUPROFEN [Concomitant]
     Active Substance: IBUPROFEN
     Dosage: ACCORDING TO NEEDS
     Route: 048

REACTIONS (10)
  - Mental disorder [Recovered/Resolved with Sequelae]
  - Anterograde amnesia [Recovered/Resolved with Sequelae]
  - Joint swelling [Recovered/Resolved with Sequelae]
  - Amnestic disorder [Recovered/Resolved with Sequelae]
  - Bradyphrenia [Recovered/Resolved with Sequelae]
  - Retrograde amnesia [Recovered/Resolved with Sequelae]
  - Cognitive disorder [Recovered/Resolved with Sequelae]
  - Amnesia [Recovered/Resolved with Sequelae]
  - Myalgia [Recovered/Resolved with Sequelae]
  - Communication disorder [Recovered/Resolved with Sequelae]

NARRATIVE: CASE EVENT DATE: 20201119
